FAERS Safety Report 8642181 (Version 4)
Quarter: 2012Q4

REPORT INFORMATION
  Report Type: 
  Country: JP (occurrence: JP)
  Receive Date: 20120628
  Receipt Date: 20121107
  Transmission Date: 20130627
  Serious: Yes (Hospitalization, Other)
  Sender: FDA-Public Use
  Company Number: JP-B.I. PHARMACEUTICALS,INC./RIDGEFIELD-2012-BP-14258NB

PATIENT
  Age: 82 Year
  Sex: Female
  Weight: 48.5 kg

DRUGS (13)
  1. PRAZAXA [Suspect]
     Indication: ATRIAL FIBRILLATION
     Dosage: 220 mg
     Route: 048
     Dates: start: 20120605, end: 20120613
  2. WARFARIN [Suspect]
     Indication: CARDIAC PACEMAKER INSERTION
     Dosage: 3 mg
     Route: 065
  3. VASOLAN [Concomitant]
     Indication: CARDIAC FAILURE CHRONIC
     Dosage: 240 mg
     Route: 048
  4. OLMETEC [Concomitant]
     Indication: HYPERTENSION
     Dosage: 20 mg
     Route: 048
     Dates: end: 20120612
  5. PLAVIX [Concomitant]
     Indication: CARDIAC FAILURE CHRONIC
     Dosage: 75 mg
     Route: 048
  6. AMLODIN OD [Concomitant]
     Indication: HYPERTENSION
     Dosage: 5 mg
     Route: 048
     Dates: end: 20120612
  7. MAINTATE [Concomitant]
     Indication: CARDIAC FAILURE CHRONIC
     Dosage: 5 mg
     Route: 065
  8. LASIX [Concomitant]
     Indication: CARDIAC FAILURE CHRONIC
     Dosage: 20 mg
     Route: 065
  9. MAGMITT [Concomitant]
     Dosage: 660 mg
     Route: 065
  10. GASTER [Concomitant]
     Dosage: 20 mg
     Route: 065
  11. CONSTAN [Concomitant]
     Dosage: 0.8 mg
     Route: 065
  12. HALCION [Concomitant]
     Dosage: 0.25 mg
     Route: 065
  13. KREMEZIN [Concomitant]
     Dosage: 6 g
     Route: 065

REACTIONS (6)
  - Hepatic function abnormal [Recovered/Resolved]
  - Cardiogenic shock [Not Recovered/Not Resolved]
  - Cardiac failure [Recovered/Resolved]
  - Blood pressure decreased [Recovered/Resolved]
  - Renal failure [Not Recovered/Not Resolved]
  - Coagulopathy [Recovered/Resolved]
